FAERS Safety Report 25063505 (Version 1)
Quarter: 2025Q1

REPORT INFORMATION
  Report Type: Spontaneous
  Country: JP (occurrence: JP)
  Receive Date: 20250311
  Receipt Date: 20250311
  Transmission Date: 20250409
  Serious: Yes (Death, Other)
  Sender: UNITED THERAPEUTICS
  Company Number: JP-UNITED THERAPEUTICS-UNT-2025-008204

PATIENT
  Age: 77 Year
  Sex: Male

DRUGS (1)
  1. TYVASO [Suspect]
     Active Substance: TREPROSTINIL
     Indication: Pulmonary hypertension

REACTIONS (1)
  - Death [Fatal]

NARRATIVE: CASE EVENT DATE: 20250305
